FAERS Safety Report 6816406-7 (Version None)
Quarter: 2010Q3

REPORT INFORMATION
  Report Type: 
  Country: None (occurrence: None)
  Receive Date: 20100705
  Receipt Date: 20100630
  Transmission Date: 20110219
  Serious: Yes (Death, Other)
  Sender: FDA-Public Use
  Company Number: PHHY2010IN42517

PATIENT
  Age: 35 Year
  Sex: Female

DRUGS (4)
  1. CYCLOSPORINE [Suspect]
     Indication: APLASTIC ANAEMIA
     Dosage: 5 MG/KG PER DAY IN 2 DIVIDED DOSES
  2. STANOZOLOL [Suspect]
     Dosage: 2 MG/KG PER DAY
  3. ANTITHYMOCYTE IMMUNOGLOBULIN [Suspect]
     Indication: SERUM SICKNESS
     Dosage: 40 MG/KG
     Route: 042
  4. PREDNISOLONE [Concomitant]
     Indication: SERUM SICKNESS
     Dosage: 1 MG/KG PER DAY
     Route: 048

REACTIONS (11)
  - ASPERGILLOSIS [None]
  - CHILLS [None]
  - FEBRILE NEUTROPENIA [None]
  - HEPATIC FUNCTION ABNORMAL [None]
  - HEPATOMEGALY [None]
  - LUNG INFECTION [None]
  - MULTI-ORGAN FAILURE [None]
  - PYREXIA [None]
  - RENAL FAILURE ACUTE [None]
  - RENAL IMPAIRMENT [None]
  - SEPSIS [None]
